FAERS Safety Report 7269212-6 (Version None)
Quarter: 2011Q1

REPORT INFORMATION
  Report Type: 
  Country: None (occurrence: None)
  Receive Date: 20110124
  Receipt Date: 20110110
  Transmission Date: 20110831
  Serious: Yes (Death, Hospitalization)
  Sender: FDA-Public Use
  Company Number: DSA_44785_2011

PATIENT
  Sex: Male

DRUGS (11)
  1. INVESTIGATIONAL DRUG (INVESTIGATIONAL DRUG) [Suspect]
     Indication: PRODUCT USED FOR UNKNOWN INDICATION
     Dosage: DF
  2. REBETRON [Concomitant]
  3. PROCRIT [Suspect]
     Indication: PRODUCT USED FOR UNKNOWN INDICATION
     Dosage: 60000 UNITS;
     Dates: start: 20031219
  4. COPEGUS [Suspect]
     Indication: HEPATITIS C
     Dosage: DF
     Dates: start: 20031203
  5. INTRON A [Concomitant]
  6. BUPROPION HCL [Suspect]
     Indication: PRODUCT USED FOR UNKNOWN INDICATION
     Dosage: DF, ORAL
     Route: 048
  7. FILGRASTIM [Concomitant]
  8. PEGASYS [Suspect]
     Indication: PRODUCT USED FOR UNKNOWN INDICATION
     Dosage: DF
     Dates: start: 20030101
  9. EPOGEN [Concomitant]
  10. METHADONE HCL [Concomitant]
  11. GABAPENTIN [Concomitant]

REACTIONS (8)
  - PERITONITIS [None]
  - LARGE INTESTINE PERFORATION [None]
  - PERITONEAL ADHESIONS [None]
  - UNEVALUABLE EVENT [None]
  - CONTRAINDICATION TO MEDICAL TREATMENT [None]
  - INTESTINAL ISCHAEMIA [None]
  - HAEMATOCHEZIA [None]
  - DIARRHOEA [None]
